FAERS Safety Report 19189683 (Version 3)
Quarter: 2025Q2

REPORT INFORMATION
  Report Type: Spontaneous
  Country: CA (occurrence: CA)
  Receive Date: 20210428
  Receipt Date: 20250410
  Transmission Date: 20250716
  Serious: Yes (Hospitalization)
  Sender: PFIZER
  Company Number: CA-PFIZER INC-2021432183

PATIENT
  Age: 65 Year
  Sex: Female

DRUGS (36)
  1. ZITHROMAX [Suspect]
     Active Substance: AZITHROMYCIN DIHYDRATE
  2. ZITHROMAX [Suspect]
     Active Substance: AZITHROMYCIN DIHYDRATE
     Dosage: UNK, 1X/DAY
  3. ALVESCO [Suspect]
     Active Substance: CICLESONIDE
     Route: 055
  4. ALVESCO [Suspect]
     Active Substance: CICLESONIDE
     Dosage: 200 UG, 1X/DAY
     Route: 055
  5. ALVESCO [Suspect]
     Active Substance: CICLESONIDE
     Route: 065
  6. ALVESCO [Suspect]
     Active Substance: CICLESONIDE
     Dosage: 200 UG, 2X/DAY
     Route: 055
  7. ALVESCO [Suspect]
     Active Substance: CICLESONIDE
     Route: 055
  8. ALVESCO [Suspect]
     Active Substance: CICLESONIDE
     Route: 055
  9. ATROVENT [Suspect]
     Active Substance: IPRATROPIUM BROMIDE
     Dosage: 20 UG, 1X/DAY
  10. ATROVENT [Suspect]
     Active Substance: IPRATROPIUM BROMIDE
     Dosage: 40 UG, 1X/DAY
  11. ATROVENT [Suspect]
     Active Substance: IPRATROPIUM BROMIDE
     Route: 065
  12. ATROVENT [Suspect]
     Active Substance: IPRATROPIUM BROMIDE
     Dosage: 20 UG, 2X/DAY
     Route: 065
  13. NUCALA [Suspect]
     Active Substance: MEPOLIZUMAB
     Indication: Asthma
     Dosage: 100 MG, 1X/DAY
  14. NUCALA [Suspect]
     Active Substance: MEPOLIZUMAB
     Dosage: 100 MG, 1X/DAY
  15. NUCALA [Suspect]
     Active Substance: MEPOLIZUMAB
  16. NUCALA [Suspect]
     Active Substance: MEPOLIZUMAB
     Dosage: 100 MG, MONTHLY
  17. RUPATADINE [Suspect]
     Active Substance: RUPATADINE
     Indication: Multiple allergies
  18. ALBUTEROL [Suspect]
     Active Substance: ALBUTEROL
     Route: 055
  19. ALBUTEROL [Suspect]
     Active Substance: ALBUTEROL
  20. ALBUTEROL [Suspect]
     Active Substance: ALBUTEROL
     Dosage: 100 UG, 1X/DAY
     Route: 055
  21. ALBUTEROL [Suspect]
     Active Substance: ALBUTEROL
     Dosage: 100 UG, 1X/DAY
  22. ALBUTEROL [Suspect]
     Active Substance: ALBUTEROL
     Route: 065
  23. SYMBICORT [Suspect]
     Active Substance: BUDESONIDE\FORMOTEROL FUMARATE DIHYDRATE
     Route: 055
  24. SYMBICORT [Suspect]
     Active Substance: BUDESONIDE\FORMOTEROL FUMARATE DIHYDRATE
     Dosage: 2 DF, 2X/DAY
     Route: 055
  25. SYMBICORT [Suspect]
     Active Substance: BUDESONIDE\FORMOTEROL FUMARATE DIHYDRATE
     Route: 055
  26. SYMBICORT [Suspect]
     Active Substance: BUDESONIDE\FORMOTEROL FUMARATE DIHYDRATE
     Dosage: 4 DF, 1X/DAY
     Route: 055
  27. ALVESCO [Suspect]
     Active Substance: CICLESONIDE
     Dosage: 200 UG, 1X/DAY
     Route: 055
  28. ALVESCO [Suspect]
     Active Substance: CICLESONIDE
     Dosage: 400 UG, 1X/DAY
     Route: 055
  29. ALVESCO [Suspect]
     Active Substance: CICLESONIDE
  30. FLUTICASONE PROPIONATE\SALMETEROL XINAFOATE [Suspect]
     Active Substance: FLUTICASONE PROPIONATE\SALMETEROL XINAFOATE
  31. RUPATADINE FUMARATE [Suspect]
     Active Substance: RUPATADINE FUMARATE
     Indication: Multiple allergies
  32. BUDESONIDE\FORMOTEROL FUMARATE [Suspect]
     Active Substance: BUDESONIDE\FORMOTEROL FUMARATE
     Route: 065
  33. BUDESONIDE\FORMOTEROL FUMARATE [Suspect]
     Active Substance: BUDESONIDE\FORMOTEROL FUMARATE
     Dosage: UNK, 1X/DAY
     Route: 055
  34. CICLESONIDE [Suspect]
     Active Substance: CICLESONIDE
     Dosage: 2 DF, 1X/DAY
  35. CICLESONIDE [Suspect]
     Active Substance: CICLESONIDE
     Route: 065
  36. ALBUTEROL SULFATE [Suspect]
     Active Substance: ALBUTEROL SULFATE
     Route: 065

REACTIONS (6)
  - Asthma [Recovered/Resolved]
  - Dyspnoea [Recovered/Resolved]
  - Therapeutic product effect incomplete [Recovered/Resolved]
  - Wheezing [Recovered/Resolved]
  - Loss of personal independence in daily activities [Recovered/Resolved]
  - Sleep disorder due to a general medical condition [Recovered/Resolved]
